FAERS Safety Report 12800675 (Version 1)
Quarter: 2016Q4

REPORT INFORMATION
  Report Type: Spontaneous
  Country: US (occurrence: US)
  Receive Date: 20161001
  Receipt Date: 20161001
  Transmission Date: 20170207
  Serious: No
  Sender: FDA-Public Use
  Company Number: US-TAKEDA-2016TUS016816

PATIENT
  Age: 79 Year
  Sex: Female
  Weight: 87.53 kg

DRUGS (6)
  1. COLCRYS [Suspect]
     Active Substance: COLCHICINE
     Dosage: UNK UNK, QD
     Route: 048
  2. COLCRYS [Suspect]
     Active Substance: COLCHICINE
     Dosage: 1.2 MG, QD
     Route: 048
     Dates: start: 201609
  3. COLCRYS [Suspect]
     Active Substance: COLCHICINE
     Indication: GOUT
     Dosage: 0.6 MG, QD
     Route: 048
     Dates: start: 2014
  4. COLCRYS [Suspect]
     Active Substance: COLCHICINE
     Dosage: 0.6 MG, QD
     Route: 048
  5. COLCRYS [Suspect]
     Active Substance: COLCHICINE
     Dosage: UNK UNK, QOD
     Route: 048
  6. COLCRYS [Suspect]
     Active Substance: COLCHICINE
     Dosage: UNK UNK, QD
     Route: 048

REACTIONS (6)
  - Diarrhoea [Recovered/Resolved]
  - Incorrect dose administered [Unknown]
  - Abdominal pain upper [Recovering/Resolving]
  - Gout [Recovered/Resolved]
  - Constipation [Not Recovered/Not Resolved]
  - Wrong technique in product usage process [Recovered/Resolved]

NARRATIVE: CASE EVENT DATE: 201609
